FAERS Safety Report 5858232-1 (Version None)
Quarter: 2008Q3

REPORT INFORMATION
  Report Type: 
  Country: None (occurrence: None)
  Receive Date: 20080826
  Receipt Date: 20080821
  Transmission Date: 20090109
  Serious: Yes (Other)
  Sender: FDA-Public Use
  Company Number: A0734603A

PATIENT
  Age: 59 Year
  Sex: Female
  Weight: 131.8 kg

DRUGS (1)
  1. AVANDIA [Suspect]
     Dosage: 8MG PER DAY
     Route: 048
     Dates: start: 20021101, end: 20060901

REACTIONS (7)
  - ANEURYSM [None]
  - ANXIETY [None]
  - CARDIAC FAILURE CONGESTIVE [None]
  - HEART DISEASE CONGENITAL [None]
  - HEART INJURY [None]
  - MYOCARDIAL INFARCTION [None]
  - PAIN [None]
